FAERS Safety Report 9834127 (Version 1)
Quarter: 2014Q1

REPORT INFORMATION
  Report Type: Spontaneous
  Country: HU (occurrence: HU)
  Receive Date: 20140122
  Receipt Date: 20140122
  Transmission Date: 20141002
  Serious: Yes (Hospitalization, Other)
  Sender: FDA-Public Use
  Company Number: HU-AMGEN-HUNSP2013091896

PATIENT
  Age: 65 Year
  Sex: Female

DRUGS (3)
  1. ENBREL [Suspect]
     Indication: RHEUMATOID ARTHRITIS
     Dosage: 50 MG, WEEKLY
     Route: 058
     Dates: start: 20110630, end: 201301
  2. CARVEDILOL [Concomitant]
     Indication: HYPERTENSION
     Dosage: 25 MG, 1X/DAY
     Route: 048
  3. CALCISEDRON D [Concomitant]
     Indication: OSTEOPOROSIS
     Dosage: ORAL 70 MG ALENDRONIC ACID WEEKLY, DAILY ORAL 1500 MG CALCIUM CARBONATE, 400 NE COLECALCIFEROL
     Route: 048

REACTIONS (11)
  - Body temperature increased [Recovered/Resolved]
  - Diplopia [Recovering/Resolving]
  - Eosinophilia [Recovered/Resolved]
  - Fatigue [Recovered/Resolved]
  - Gait disturbance [Recovered/Resolved]
  - Nausea [Recovered/Resolved]
  - Visual impairment [Recovering/Resolving]
  - Asthenia [Recovered/Resolved]
  - Hypereosinophilic syndrome [Recovered/Resolved]
  - Local swelling [Recovered/Resolved]
  - Vasculitis [Unknown]
